FAERS Safety Report 15980464 (Version 3)
Quarter: 2020Q4

REPORT INFORMATION
  Report Type: Report from Study
  Country: None (occurrence: US)
  Receive Date: 20190219
  Receipt Date: 20201028
  Transmission Date: 20210113
  Serious: Yes (Hospitalization, Other)
  Sender: FDA-Public Use
  Company Number: IL-ABBVIE-19S-082-2660756-00

PATIENT
  Age: 67 Year
  Sex: Male

DRUGS (5)
  1. DUODOPA [Suspect]
     Active Substance: CARBIDOPA\LEVODOPA
     Dosage: CURRENT: MD 10 L, CD 8.2 ML/HOUR, ND 2.5 ML, ED 3.5 ML
     Route: 050
  2. DUODOPA [Suspect]
     Active Substance: CARBIDOPA\LEVODOPA
     Indication: PARKINSON^S DISEASE
     Dosage: CHANGED ROUT OF ADMINISTRATION, MD 6 ML, CD 8.2 ML/HOUR, ED 3.5 ML
     Route: 050
     Dates: start: 20170220
  3. ELATROLET [Concomitant]
     Active Substance: AMITRIPTYLINE HYDROCHLORIDE
     Indication: PRODUCT USED FOR UNKNOWN INDICATION
     Route: 065
  4. PK MERZ [Concomitant]
     Active Substance: AMANTADINE SULFATE
     Indication: PRODUCT USED FOR UNKNOWN INDICATION
     Route: 065
  5. EXFORGE [Concomitant]
     Active Substance: AMLODIPINE BESYLATE\VALSARTAN
     Indication: PRODUCT USED FOR UNKNOWN INDICATION
     Route: 065

REACTIONS (13)
  - Restlessness [Unknown]
  - Blood pressure abnormal [Unknown]
  - Product administration interrupted [Unknown]
  - Device dislocation [Unknown]
  - Orthostatic hypotension [Unknown]
  - Incorrect route of product administration [Unknown]
  - Syncope [Recovered/Resolved]
  - Device connection issue [Recovered/Resolved]
  - Supine hypertension [Unknown]
  - Gait disturbance [Unknown]
  - Unintentional medical device removal [Unknown]
  - On and off phenomenon [Recovered/Resolved]
  - Device occlusion [Unknown]

NARRATIVE: CASE EVENT DATE: 201902
